FAERS Safety Report 8986099 (Version 1)
Quarter: 2012Q4

REPORT INFORMATION
  Report Type: Spontaneous
  Country: US (occurrence: None)
  Receive Date: 20121001
  Receipt Date: 20121001
  Transmission Date: 20130627
  Serious: Yes (Other)
  Sender: FDA-Public Use
  Company Number: 86908

PATIENT
  Age: 74 Year
  Sex: Male
  Weight: 76.2 kg

DRUGS (2)
  1. EQUATE PAIN RELIEVING [Suspect]
     Indication: MUSCLE PAIN
     Route: 061
     Dates: start: 20120830
  2. EQUATE PAIN RELIEVING [Suspect]
     Indication: JOINT PAIN
     Route: 061
     Dates: start: 20120830

REACTIONS (2)
  - Dermatitis allergic [None]
  - Rash pruritic [None]
